FAERS Safety Report 13891899 (Version 2)
Quarter: 2017Q3

REPORT INFORMATION
  Report Type: Report from Study
  Country: GB (occurrence: GB)
  Receive Date: 20170822
  Receipt Date: 20170823
  Transmission Date: 20171127
  Serious: Yes (Other)
  Sender: FDA-Public Use
  Company Number: GB-ROCHE-1977971

PATIENT
  Sex: Female

DRUGS (1)
  1. ROACTEMRA [Suspect]
     Active Substance: TOCILIZUMAB
     Indication: RHEUMATOID ARTHRITIS
     Route: 058
     Dates: start: 20170803

REACTIONS (10)
  - Dyspnoea [Unknown]
  - Throat tightness [Unknown]
  - Cough [Unknown]
  - Paraesthesia oral [Unknown]
  - Pallor [Unknown]
  - Feeling abnormal [Unknown]
  - Dizziness [Unknown]
  - Oral discomfort [Unknown]
  - Palpitations [Unknown]
  - Dry mouth [Unknown]
